FAERS Safety Report 7494575-6 (Version None)
Quarter: 2011Q2

REPORT INFORMATION
  Report Type: 
  Country: None (occurrence: None)
  Receive Date: 20110520
  Receipt Date: 20110516
  Transmission Date: 20111010
  Serious: Yes (Hospitalization, Other)
  Sender: FDA-Public Use
  Company Number: PHHY2010DK47875

PATIENT
  Sex: Female
  Weight: 58 kg

DRUGS (4)
  1. DESOGESTREL AND ETHINYL ESTRADIOL [Interacting]
     Route: 048
     Dates: start: 19990601, end: 20070701
  2. HUMIRA [Interacting]
     Indication: PSORIATIC ARTHROPATHY
     Dosage: 40 MG/ 0.8 ML PRE-FILLED SYRINGE
     Route: 058
     Dates: start: 20060808, end: 20070925
  3. HUMIRA [Interacting]
     Dosage: UNK
     Route: 058
  4. DICLOFENAC SODIUM [Suspect]
     Indication: ARTHRALGIA
     Dates: start: 20060615, end: 20061201

REACTIONS (4)
  - PERITONEAL HAEMORRHAGE [None]
  - DRUG INTERACTION [None]
  - OVARIAN CYST RUPTURED [None]
  - ABDOMINAL PAIN [None]
